FAERS Safety Report 11440347 (Version 1)
Quarter: 2015Q3

REPORT INFORMATION
  Report Type: Spontaneous
  Country: US (occurrence: US)
  Receive Date: 20150901
  Receipt Date: 20150901
  Transmission Date: 20151125
  Serious: No
  Sender: FDA-Public Use
  Company Number: US-ROCHE-1055029

PATIENT
  Sex: Male

DRUGS (6)
  1. RIBAVIRIN. [Suspect]
     Active Substance: RIBAVIRIN
     Indication: HEPATITIS C
     Dosage: IN A DEVIDED DOSES 600/600, THE PATIENT WAS SWITHED TO RIBASHERE
     Route: 065
     Dates: start: 20120313
  2. DILAUDID [Concomitant]
     Active Substance: HYDROMORPHONE HYDROCHLORIDE
  3. INCIVEK [Suspect]
     Active Substance: TELAPREVIR
     Indication: HEPATITIS C
     Route: 065
     Dates: start: 20120313
  4. MORPHINE [Concomitant]
     Active Substance: MORPHINE
  5. PEGASYS [Suspect]
     Active Substance: PEGINTERFERON ALFA-2A
     Indication: HEPATITIS C
     Dosage: DAST PEGASYS DOSE ON 07/AUG/2012
     Route: 058
     Dates: start: 20120313, end: 20120807
  6. RIBASPHERE [Suspect]
     Active Substance: RIBAVIRIN
     Indication: HEPATITIS C
     Dosage: PATIENT WAS SWITCHED TO RIBASPHERE FROM RIBAVIRIN.
     Route: 065
     Dates: end: 20120813

REACTIONS (9)
  - Pyrexia [Unknown]
  - Malaise [Unknown]
  - Abdominal pain upper [Unknown]
  - Injection site erythema [Not Recovered/Not Resolved]
  - Diarrhoea [Unknown]
  - Bronchitis [Unknown]
  - Rash [Not Recovered/Not Resolved]
  - White blood cell count decreased [Unknown]
  - Irritability [Unknown]
